FAERS Safety Report 6943975-9 (Version None)
Quarter: 2010Q3

REPORT INFORMATION
  Report Type: 
  Country: None (occurrence: None)
  Receive Date: 20100826
  Receipt Date: 20100818
  Transmission Date: 20110219
  Serious: Yes (Other)
  Sender: FDA-Public Use
  Company Number: CA-AMGEN-KDL406350

PATIENT
  Sex: Female
  Weight: 58.1 kg

DRUGS (1)
  1. ENBREL [Suspect]
     Indication: RHEUMATOID ARTHRITIS
     Dates: start: 20100409

REACTIONS (8)
  - ABDOMINAL PAIN [None]
  - APHONIA [None]
  - BALANCE DISORDER [None]
  - DIZZINESS POSTURAL [None]
  - DYSURIA [None]
  - FALL [None]
  - MEMORY IMPAIRMENT [None]
  - VERTIGO [None]
